FAERS Safety Report 13118785 (Version 1)
Quarter: 2017Q1

REPORT INFORMATION
  Report Type: Spontaneous
  Country: HR (occurrence: HR)
  Receive Date: 20170116
  Receipt Date: 20170116
  Transmission Date: 20170428
  Serious: Yes (Hospitalization, Other)
  Sender: FDA-Public Use
  Company Number: HR-MYLANLABS-2017M1001831

PATIENT

DRUGS (3)
  1. OKSAZEPAM [Suspect]
     Active Substance: OXAZEPAM
     Indication: PRODUCT USED FOR UNKNOWN INDICATION
     Dosage: 130 MG, UNK
     Route: 048
     Dates: start: 20160503, end: 20160503
  2. BRUFEN [Suspect]
     Active Substance: IBUPROFEN
     Indication: PRODUCT USED FOR UNKNOWN INDICATION
     Dosage: 1 BRUFEN
     Route: 048
     Dates: start: 20160503, end: 20160503
  3. SANVAL [Suspect]
     Active Substance: ZOLPIDEM TARTRATE
     Indication: PRODUCT USED FOR UNKNOWN INDICATION
     Dosage: 120 MG, UNK
     Route: 048
     Dates: start: 20160503, end: 20160503

REACTIONS (4)
  - No adverse event [Unknown]
  - Suicide attempt [Unknown]
  - Intentional overdose [None]
  - Intentional overdose [Unknown]

NARRATIVE: CASE EVENT DATE: 20160503
